FAERS Safety Report 9057103 (Version 1)
Quarter: 2013Q1

REPORT INFORMATION
  Report Type: Report from Study
  Country: US (occurrence: US)
  Receive Date: 20130131
  Receipt Date: 20130131
  Transmission Date: 20140127
  Serious: No
  Sender: FDA-Public Use
  Company Number: US-ABBOTT-12P-163-0995215-00

PATIENT
  Age: 53 Year
  Sex: Female

DRUGS (9)
  1. HUMIRA [Suspect]
     Indication: CROHN^S DISEASE
     Dates: start: 20120815
  2. VALTREX [Concomitant]
     Indication: HERPES VIRUS INFECTION
     Dosage: 1 DAILY
  3. PANTOPRAZOLE [Concomitant]
     Indication: GASTROOESOPHAGEAL REFLUX DISEASE
     Dosage: 1 DAILY
  4. COLCRYS [Concomitant]
     Indication: BEHCET^S SYNDROME
     Dosage: 1 DAILY
  5. ESTROGENS CONJUGATED W/PROGESTERONE [Concomitant]
     Indication: HORMONE REPLACEMENT THERAPY
     Dosage: 1/2 TAB DAILY
  6. METOPROLOL [Concomitant]
     Indication: BLOOD PRESSURE
     Dosage: 1 TAB DAILY
  7. CITALOPRAM [Concomitant]
     Indication: HOT FLUSH
     Dosage: 1 DAILY
  8. ASACOL [Concomitant]
     Indication: CROHN^S DISEASE
     Dosage: 6 PILLS DAILY
  9. IMURAN [Concomitant]
     Indication: CROHN^S DISEASE
     Dosage: 3 TABS DAILY

REACTIONS (2)
  - Hypoaesthesia [Not Recovered/Not Resolved]
  - Paraesthesia [Not Recovered/Not Resolved]
